FAERS Safety Report 9138740 (Version 1)
Quarter: 2013Q1

REPORT INFORMATION
  Report Type: Not Available
  Country: US (occurrence: US)
  Receive Date: 20130305
  Receipt Date: 20130305
  Transmission Date: 20140127
  Serious: Yes (Death)
  Sender: FDA-Public Use
  Company Number: US-ENDO PHARMACEUTICALS INC.-PERC20090163

PATIENT
  Age: 19 Year
  Sex: Male

DRUGS (4)
  1. PERCOCET [Suspect]
     Indication: DRUG ABUSER
  2. OXYCONTIN [Suspect]
     Indication: DRUG ABUSER
  3. XANAX [Suspect]
     Indication: DRUG ABUSER
  4. ALCOHOL [Suspect]
     Indication: ALCOHOL ABUSE

REACTIONS (3)
  - Overdose [None]
  - Drug abuse [None]
  - Intentional drug misuse [None]
